FAERS Safety Report 4495295-2 (Version None)
Quarter: 2004Q4

REPORT INFORMATION
  Report Type: 
  Country: None (occurrence: None)
  Receive Date: 20041108
  Receipt Date: 20040914
  Transmission Date: 20050328
  Serious: No
  Sender: FDA-Public Use
  Company Number: US-GLAXOSMITHKLINE-A0525614A

PATIENT
  Age: 63 Year
  Sex: Female

DRUGS (6)
  1. AVANDAMET [Suspect]
     Route: 048
     Dates: start: 20040902
  2. ZETIA [Concomitant]
  3. AMARYL [Concomitant]
  4. GUANFACINE HCL [Concomitant]
  5. INDAPAMIDE [Concomitant]
  6. ATACAND [Concomitant]

REACTIONS (3)
  - CHROMATURIA [None]
  - COUGH [None]
  - UPPER RESPIRATORY TRACT INFECTION [None]
